FAERS Safety Report 8701490 (Version 2)
Quarter: 2013Q4

REPORT INFORMATION
  Report Type: Spontaneous
  Country: US (occurrence: US)
  Receive Date: 20120802
  Receipt Date: 20131031
  Transmission Date: 20140711
  Serious: Yes (Other)
  Sender: FDA-Public Use
  Company Number: US-009507513-1208USA000427

PATIENT
  Sex: Female

DRUGS (14)
  1. ZOCOR [Suspect]
     Dosage: MATERNAL DOSE
  2. METOPROLOL [Suspect]
     Dosage: MATERNAL DOSE
  3. HYDRALAZINE [Suspect]
     Dosage: MATERNAL DOSE
  4. ASPIRIN [Suspect]
     Dosage: MATERNAL DOSE
  5. CLOPIDOGREL [Suspect]
     Dosage: MATERNAL DOSE
  6. HEPARIN [Suspect]
  7. FERROUS SULFATE [Suspect]
     Dosage: MATERNAL DOSE
  8. CARVEDILOL [Suspect]
     Dosage: MATERNAL DOSE
  9. CARVEDILOL [Suspect]
     Dosage: MATERNAL DOSE
     Route: 064
  10. CARVEDILOL [Suspect]
     Dosage: MATERNAL DOSE
     Route: 064
  11. VITAMINS (UNSPECIFIED) [Suspect]
  12. [COMPOSITION UNSPECIFIED] [Suspect]
  13. HYDRALAZINE [Suspect]
     Dosage: MATERNAL DOSE
  14. MORPHINE [Suspect]

REACTIONS (2)
  - Caesarean section [Recovered/Resolved]
  - Maternal exposure during pregnancy [Recovered/Resolved]
